FAERS Safety Report 9373875 (Version 2)
Quarter: 2013Q3

REPORT INFORMATION
  Report Type: Spontaneous
  Country: US (occurrence: US)
  Receive Date: 20130628
  Receipt Date: 20130711
  Transmission Date: 20140515
  Serious: Yes (Hospitalization)
  Sender: FDA-Public Use
  Company Number: US-B.I. PHARMACEUTICALS,INC./RIDGEFIELD-2013-BI-18132BP

PATIENT
  Age: 78 Year
  Sex: Female
  Weight: 91 kg

DRUGS (2)
  1. PRADAXA [Suspect]
     Indication: ATRIAL FIBRILLATION
     Route: 048
     Dates: start: 20110415, end: 20110428
  2. PRADAXA [Suspect]
     Route: 048
     Dates: start: 20110501

REACTIONS (2)
  - Cerebrovascular accident [Recovered/Resolved with Sequelae]
  - Haematochezia [Recovered/Resolved]
